FAERS Safety Report 6210962-8 (Version None)
Quarter: 2009Q2

REPORT INFORMATION
  Report Type: 
  Country: None (occurrence: None)
  Receive Date: 20090602
  Receipt Date: 20090525
  Transmission Date: 20091009
  Serious: Yes (Hospitalization)
  Sender: FDA-Public Use
  Company Number: GR-SP-2009-02276

PATIENT
  Age: 72 Year
  Sex: Male

DRUGS (1)
  1. BCG  THERAPEUTICS [Suspect]
     Indication: BLADDER CANCER
     Dosage: NOT REPORTED
     Route: 043

REACTIONS (14)
  - ANOREXIA [None]
  - ASTHENIA [None]
  - BACK PAIN [None]
  - BONE PAIN [None]
  - BOVINE TUBERCULOSIS [None]
  - GAIT DISTURBANCE [None]
  - INTRASPINAL ABSCESS [None]
  - NORMOCHROMIC NORMOCYTIC ANAEMIA [None]
  - PAIN IN EXTREMITY [None]
  - PARAESTHESIA [None]
  - PITTING OEDEMA [None]
  - SPONDYLITIS [None]
  - TUBERCULIN TEST POSITIVE [None]
  - WEIGHT DECREASED [None]
